FAERS Safety Report 7007924-X (Version None)
Quarter: 2010Q3

REPORT INFORMATION
  Report Type: 
  Country: None (occurrence: None)
  Receive Date: 20100922
  Receipt Date: 20100914
  Transmission Date: 20110219
  Serious: Yes (Other)
  Sender: FDA-Public Use
  Company Number: JP-PFIZER INC-2010116182

PATIENT
  Age: 90 Year
  Sex: Female
  Weight: 40 kg

DRUGS (4)
  1. NORVASC [Suspect]
     Indication: HYPERTENSION
     Dosage: 5 MG/DAY
     Route: 048
     Dates: end: 20080128
  2. CERCINE [Concomitant]
     Indication: INSOMNIA
     Dosage: 1 MG, 2X/DAY
     Route: 048
  3. MYSLEE [Concomitant]
     Indication: INSOMNIA
     Dosage: 5 MG, 1X/DAY
     Route: 048
  4. DIGOXIN [Concomitant]
     Indication: CARDIAC FAILURE CONGESTIVE
     Dosage: 0.125 MG, 1X/DAY
     Route: 048

REACTIONS (1)
  - PARKINSONISM [None]
